FAERS Safety Report 6467305-4 (Version None)
Quarter: 2009Q4

REPORT INFORMATION
  Report Type: 
  Country: None (occurrence: None)
  Receive Date: 20091130
  Receipt Date: 20091111
  Transmission Date: 20100525
  Serious: Yes (Hospitalization, Other)
  Sender: FDA-Public Use
  Company Number: 2009AP004559

PATIENT
  Age: 75 Year
  Sex: Male
  Weight: 65.8 kg

DRUGS (5)
  1. GABAPENTIN [Suspect]
     Indication: ANXIETY
     Dosage: 300 MG; TID; PO
     Route: 048
  2. CITALOPRAM HYDROBROMIDE [Concomitant]
  3. CITALOPRAM HYDROBROMIDE [Concomitant]
  4. TRAZODONE HCL [Concomitant]
  5. LIDOCAINE [Concomitant]

REACTIONS (11)
  - AMNESIA [None]
  - ANXIETY [None]
  - CEREBELLAR SYNDROME [None]
  - CHOREA [None]
  - CHOREOATHETOSIS [None]
  - COGNITIVE DISORDER [None]
  - COMMUNICATION DISORDER [None]
  - CONDITION AGGRAVATED [None]
  - DYSARTHRIA [None]
  - DYSKINESIA [None]
  - PAST-POINTING [None]
